FAERS Safety Report 7323261-8 (Version None)
Quarter: 2011Q1

REPORT INFORMATION
  Report Type: 
  Country: None (occurrence: None)
  Receive Date: 20110301
  Receipt Date: 20110217
  Transmission Date: 20110831
  Serious: Yes (Hospitalization)
  Sender: FDA-Public Use
  Company Number: IT-SANOFI-AVENTIS-2011SA007297

PATIENT
  Age: 79 Year
  Sex: Male

DRUGS (13)
  1. OXYGEN [Concomitant]
     Route: 065
  2. POTASSIUM CHLORIDE [Concomitant]
     Route: 065
  3. SPIRONOLACTONE [Concomitant]
     Route: 065
  4. ALLOPURINOL [Concomitant]
     Route: 065
  5. EUTIROX [Concomitant]
     Route: 065
  6. ENALAPRIL [Concomitant]
     Route: 065
  7. LASIX [Concomitant]
     Route: 065
  8. FLUTICASONE PROPIONATE/SALMETEROL [Concomitant]
     Route: 065
  9. COUMADIN [Concomitant]
     Route: 065
  10. CLONIDINE [Concomitant]
     Route: 065
  11. CORDARONE [Concomitant]
     Route: 048
     Dates: start: 20081117, end: 20101115
  12. MULTAQ [Suspect]
     Dosage: DOSE:2 UNIT(S)
     Route: 048
     Dates: start: 20101118, end: 20101125
  13. SPIRIVA [Concomitant]
     Route: 065

REACTIONS (2)
  - ANAEMIA [None]
  - RENAL FAILURE ACUTE [None]
